FAERS Safety Report 20691941 (Version 2)
Quarter: 2022Q2

REPORT INFORMATION
  Report Type: Other
  Country: SA (occurrence: None)
  Receive Date: 20220408
  Receipt Date: 20220418
  Transmission Date: 20220720
  Serious: Yes (Congenital Anomaly, Other)
  Sender: FDA-Public Use
  Company Number: SA-ROCHE-3068540

PATIENT
  Age: 2 Month
  Sex: Female
  Weight: 1.69 kg

DRUGS (10)
  1. MYCOPHENOLATE MOFETIL [Suspect]
     Active Substance: MYCOPHENOLATE MOFETIL
     Indication: Systemic lupus erythematosus
     Route: 064
  2. MYCOPHENOLATE MOFETIL [Suspect]
     Active Substance: MYCOPHENOLATE MOFETIL
     Indication: Sjogren^s syndrome
  3. MYCOPHENOLATE MOFETIL [Suspect]
     Active Substance: MYCOPHENOLATE MOFETIL
     Indication: Lupus nephritis
  4. MYCOPHENOLATE MOFETIL [Suspect]
     Active Substance: MYCOPHENOLATE MOFETIL
     Indication: Carditis
  5. MYCOPHENOLATE MOFETIL [Suspect]
     Active Substance: MYCOPHENOLATE MOFETIL
     Indication: Hypertension
  6. PERINDOPRIL [Concomitant]
     Active Substance: PERINDOPRIL
     Route: 064
  7. BISOPROLOL [Concomitant]
     Active Substance: BISOPROLOL
     Route: 064
  8. PREDNISOLONE [Concomitant]
     Active Substance: PREDNISOLONE
     Route: 064
  9. HYDROXYCHLOROQUINE [Concomitant]
     Active Substance: HYDROXYCHLOROQUINE
     Route: 064
  10. CYCLOPHOSPHAMIDE [Concomitant]
     Active Substance: CYCLOPHOSPHAMIDE
     Dosage: 6 CYCLES
     Route: 064

REACTIONS (21)
  - Hypertelorism [Unknown]
  - Microtia [Unknown]
  - Micrognathia [Unknown]
  - Cleft lip [Unknown]
  - Cleft palate [Unknown]
  - Coloboma [Unknown]
  - Kidney malformation [Unknown]
  - Dysmorphism [Unknown]
  - Patent ductus arteriosus [Unknown]
  - Ventricular septal defect [Unknown]
  - Hydronephrosis [Unknown]
  - Heart rate decreased [Unknown]
  - Respiration abnormal [Unknown]
  - Bradycardia neonatal [Unknown]
  - Neonatal hypoxia [Unknown]
  - Apgar score low [Recovered/Resolved]
  - Low birth weight baby [Unknown]
  - Ill-defined disorder [Unknown]
  - Cardiac murmur [Unknown]
  - Premature baby [Unknown]
  - Foetal exposure during pregnancy [Unknown]
